FAERS Safety Report 6424582-3 (Version None)
Quarter: 2009Q4

REPORT INFORMATION
  Report Type: 
  Country: None (occurrence: None)
  Receive Date: 20091103
  Receipt Date: 20091020
  Transmission Date: 20100525
  Serious: Yes (Other)
  Sender: FDA-Public Use
  Company Number: PHHY2009BR45859

PATIENT
  Age: 56 Year
  Sex: Female
  Weight: 74 kg

DRUGS (1)
  1. DIOVAN HCT [Suspect]
     Indication: BLOOD PRESSURE
     Dosage: 1 DF (160/12.5 MG) DAILY
     Route: 048

REACTIONS (8)
  - ACTIVITIES OF DAILY LIVING IMPAIRED [None]
  - ANAESTHESIA [None]
  - DIZZINESS [None]
  - FATIGUE [None]
  - NAUSEA [None]
  - SENSORY LOSS [None]
  - TREMOR [None]
  - VISION BLURRED [None]
